FAERS Safety Report 8836692 (Version 1)
Quarter: 2012Q4

REPORT INFORMATION
  Report Type: Spontaneous
  Country: US (occurrence: None)
  Receive Date: 20121010
  Receipt Date: 20121010
  Transmission Date: 20130627
  Serious: Yes (Disabling)
  Sender: FDA-Public Use
  Company Number: 2012S1001168

PATIENT
  Sex: Female

DRUGS (1)
  1. LIVALO [Suspect]
     Dates: end: 20120910

REACTIONS (4)
  - Dyspnoea [None]
  - Abasia [None]
  - Feeling abnormal [None]
  - Thrombosis [None]
